FAERS Safety Report 14579639 (Version 2)
Quarter: 2018Q2

REPORT INFORMATION
  Report Type: Spontaneous
  Country: US (occurrence: US)
  Receive Date: 20180227
  Receipt Date: 20180418
  Transmission Date: 20180711
  Serious: Yes (Hospitalization)
  Sender: FDA-Public Use
  Company Number: US-ASTRAZENECA-2018SE23078

PATIENT
  Age: 74 Year
  Sex: Female
  Weight: 72.6 kg

DRUGS (2)
  1. BYETTA [Suspect]
     Active Substance: EXENATIDE
     Indication: DIABETES MELLITUS
     Route: 065
     Dates: start: 2008
  2. BYDUREON [Suspect]
     Active Substance: EXENATIDE
     Indication: DIABETES MELLITUS
     Route: 058
     Dates: start: 201604

REACTIONS (8)
  - Rotator cuff syndrome [Recovered/Resolved]
  - Nephrolithiasis [Unknown]
  - Spinal column stenosis [Unknown]
  - Body height decreased [Unknown]
  - Fall [Unknown]
  - Intentional product misuse [Unknown]
  - Arthritis [Unknown]
  - Product colour issue [Unknown]

NARRATIVE: CASE EVENT DATE: 2012
